FAERS Safety Report 4874264-4 (Version None)
Quarter: 2006Q1

REPORT INFORMATION
  Report Type: 
  Country: None (occurrence: None)
  Receive Date: 20060106
  Receipt Date: 20051005
  Transmission Date: 20060701
  Serious: Yes (Hospitalization, Disabling, Other)
  Sender: FDA-Public Use
  Company Number: US-MERCK-0510USA04538

PATIENT
  Age: 63 Year
  Sex: Male
  Weight: 105 kg

DRUGS (1)
  1. VIOXX [Suspect]
     Indication: BACK PAIN
     Route: 048
     Dates: start: 20000101

REACTIONS (8)
  - ADVERSE EVENT [None]
  - BACK INJURY [None]
  - CEREBROVASCULAR ACCIDENT [None]
  - EYELID TUMOUR [None]
  - INSOMNIA [None]
  - RETINAL VEIN OCCLUSION [None]
  - SPONDYLOLISTHESIS [None]
  - SPONDYLOLYSIS [None]
